FAERS Safety Report 16057989 (Version 4)
Quarter: 2021Q1

REPORT INFORMATION
  Report Type: Report from Study
  Country: CA (occurrence: CA)
  Receive Date: 20190311
  Receipt Date: 20210128
  Transmission Date: 20210419
  Serious: Yes (Other)
  Sender: FDA-Public Use
  Company Number: PHHY2019CA048514

PATIENT
  Age: 38 Year
  Sex: Female

DRUGS (3)
  1. KISQALI [Suspect]
     Active Substance: RIBOCICLIB
     Dosage: 400 MG
     Route: 048
     Dates: start: 202001
  2. KISQALI [Suspect]
     Active Substance: RIBOCICLIB
     Indication: BREAST CANCER METASTATIC
     Dosage: 400 MG, QD
     Route: 048
  3. KISQALI [Suspect]
     Active Substance: RIBOCICLIB
     Dosage: 600 MG, QD
     Route: 048
     Dates: start: 201806

REACTIONS (10)
  - Infectious pleural effusion [Recovering/Resolving]
  - Metastases to liver [Unknown]
  - Metastases to bone [Not Recovered/Not Resolved]
  - Hepatic lesion [Unknown]
  - Metastases to pleura [Recovering/Resolving]
  - Malignant neoplasm progression [Not Recovered/Not Resolved]
  - Intervertebral disc compression [Unknown]
  - Pleural effusion [Recovered/Resolved]
  - Splenic cyst [Unknown]
  - Full blood count abnormal [Recovered/Resolved]

NARRATIVE: CASE EVENT DATE: 20181213
